FAERS Safety Report 14275747 (Version 3)
Quarter: 2019Q1

REPORT INFORMATION
  Report Type: Spontaneous
  Country: US (occurrence: US)
  Receive Date: 20171211
  Receipt Date: 20190123
  Transmission Date: 20190417
  Serious: Yes (Other)
  Sender: FDA-Public Use
  Company Number: US-OTSUKA-2017_010073

PATIENT
  Age: 47 Year
  Sex: Male
  Weight: 83.45 kg

DRUGS (8)
  1. ABILIFY [Suspect]
     Active Substance: ARIPIPRAZOLE
     Dosage: 7 MG, UNK
     Route: 065
  2. BUSPAR [Concomitant]
     Active Substance: BUSPIRONE HYDROCHLORIDE
     Indication: PSYCHOMOTOR HYPERACTIVITY
     Dosage: 10 MG, TID
     Route: 065
  3. XANAX [Concomitant]
     Active Substance: ALPRAZOLAM
     Indication: SLEEP DISORDER
     Dosage: UNK
     Route: 065
  4. ABILIFY [Suspect]
     Active Substance: ARIPIPRAZOLE
     Indication: PERSONALITY DISORDER
     Dosage: 5 MG, QD
     Route: 065
     Dates: end: 20141201
  5. ABILIFY [Suspect]
     Active Substance: ARIPIPRAZOLE
     Indication: ANXIETY
     Dosage: 2 MG, QD
     Route: 065
     Dates: start: 20100115
  6. RISPERIDONE. [Concomitant]
     Active Substance: RISPERIDONE
     Indication: PRODUCT USED FOR UNKNOWN INDICATION
     Dosage: 0.25 MG, QD
     Route: 065
  7. TRAZODONE [Concomitant]
     Active Substance: TRAZODONE HYDROCHLORIDE
     Indication: PRODUCT USED FOR UNKNOWN INDICATION
     Dosage: 50 MG, QHS
     Route: 065
  8. CELEXA [Concomitant]
     Active Substance: CITALOPRAM HYDROBROMIDE
     Indication: PRODUCT USED FOR UNKNOWN INDICATION
     Dosage: 20 MG, QD
     Route: 065

REACTIONS (23)
  - Gambling disorder [Recovered/Resolved]
  - Economic problem [Unknown]
  - Irritability [Unknown]
  - Divorced [Unknown]
  - Substance use [Unknown]
  - Drug abuse [Unknown]
  - Impaired work ability [Unknown]
  - Stress [Unknown]
  - Pain [Unknown]
  - Product use in unapproved indication [Unknown]
  - Brain injury [Unknown]
  - Neuropsychiatric symptoms [Unknown]
  - Injury [Unknown]
  - Loss of employment [Unknown]
  - Paranoid personality disorder [Unknown]
  - Paranoia [Unknown]
  - Aggression [Unknown]
  - Insomnia [Unknown]
  - Headache [Unknown]
  - Hernia repair [Unknown]
  - Affective disorder [Unknown]
  - Emotional distress [Unknown]
  - Occupational physical problem [Unknown]

NARRATIVE: CASE EVENT DATE: 20100115
